FAERS Safety Report 19420037 (Version 1)
Quarter: 2021Q2

REPORT INFORMATION
  Report Type: Spontaneous
  Country: FR (occurrence: FR)
  Receive Date: 20210615
  Receipt Date: 20210615
  Transmission Date: 20210717
  Serious: Yes (Other)
  Sender: FDA-Public Use
  Company Number: FR-ROCHE-2849258

PATIENT
  Age: 60 Year
  Sex: Male
  Weight: 85 kg

DRUGS (10)
  1. ARAVA [Suspect]
     Active Substance: LEFLUNOMIDE
     Indication: RHEUMATOID ARTHRITIS
     Route: 048
     Dates: start: 201912
  2. CORTANCYL [Concomitant]
     Active Substance: PREDNISONE
  3. KARDEGIC [Concomitant]
     Active Substance: ASPIRIN DL-LYSINE
  4. ROACTEMRA [Suspect]
     Active Substance: TOCILIZUMAB
     Indication: RHEUMATOID ARTHRITIS
     Route: 041
     Dates: start: 201912
  5. ATORVASTATINE [Concomitant]
     Active Substance: ATORVASTATIN
  6. ZANEXTRA [Concomitant]
     Active Substance: ENALAPRIL MALEATE\LERCANIDIPINE HYDROCHLORIDE
  7. DOLIPRANE [Concomitant]
     Active Substance: ACETAMINOPHEN
  8. BISOPROLOL [Concomitant]
     Active Substance: BISOPROLOL
  9. ESIDREX [Concomitant]
     Active Substance: HYDROCHLOROTHIAZIDE
  10. EUPRESSYL [Concomitant]
     Active Substance: URAPIDIL

REACTIONS (1)
  - Polycythaemia [Recovering/Resolving]

NARRATIVE: CASE EVENT DATE: 202007
